FAERS Safety Report 21775039 (Version 1)
Quarter: 2022Q4

REPORT INFORMATION
  Report Type: Spontaneous
  Country: US (occurrence: None)
  Receive Date: 20221225
  Receipt Date: 20221225
  Transmission Date: 20230112
  Serious: No
  Sender: FDA-Public Use
  Company Number: 2022A404177

PATIENT
  Age: 30824 Day
  Sex: Male
  Weight: 90.7 kg

DRUGS (1)
  1. SYMBICORT [Suspect]
     Active Substance: BUDESONIDE\FORMOTEROL FUMARATE DIHYDRATE
     Indication: Bronchitis chronic
     Dosage: 160UG/MG TWO TIMES A DAY
     Route: 055
     Dates: start: 20221205

REACTIONS (7)
  - Off label use [Unknown]
  - Device use error [Unknown]
  - Headache [Recovered/Resolved]
  - Dizziness [Unknown]
  - Product dose omission issue [Unknown]
  - Condition aggravated [Unknown]
  - Blood pressure increased [Unknown]

NARRATIVE: CASE EVENT DATE: 20220905
